FAERS Safety Report 15757961 (Version 1)
Quarter: 2018Q4

REPORT INFORMATION
  Report Type: Spontaneous
  Country: IT (occurrence: IT)
  Receive Date: 20181225
  Receipt Date: 20181225
  Transmission Date: 20190205
  Serious: Yes (Life-Threatening)
  Sender: FDA-Public Use
  Company Number: IT-ACCORD-097539

PATIENT
  Age: 89 Year
  Sex: Female
  Weight: 41 kg

DRUGS (2)
  1. TIGECYCLINE. [Suspect]
     Active Substance: TIGECYCLINE
     Indication: PNEUMONITIS
     Route: 041
  2. MEROPENEM. [Suspect]
     Active Substance: MEROPENEM
     Indication: PNEUMONITIS

REACTIONS (3)
  - Haematoma [Recovering/Resolving]
  - Blood fibrinogen decreased [Recovering/Resolving]
  - Acute hepatic failure [Recovering/Resolving]

NARRATIVE: CASE EVENT DATE: 20180205
